FAERS Safety Report 5692883-2 (Version None)
Quarter: 2008Q2

REPORT INFORMATION
  Report Type: 
  Country: None (occurrence: None)
  Receive Date: 20080326
  Receipt Date: 20080104
  Transmission Date: 20081010
  Serious: No
  Sender: FDA-Public Use
  Company Number: US-CVT-080001

PATIENT
  Sex: Male

DRUGS (1)
  1. RANEXA [Suspect]
     Indication: DRUG USE FOR UNKNOWN INDICATION
     Dosage: 500 MG, BID, ORAL
     Route: 048

REACTIONS (1)
  - MYALGIA [None]
